FAERS Safety Report 12759267 (Version 2)
Quarter: 2016Q3

REPORT INFORMATION
  Report Type: Spontaneous
  Country: US (occurrence: US)
  Receive Date: 20160919
  Receipt Date: 20160921
  Transmission Date: 20161109
  Serious: Yes (Other)
  Sender: FDA-Public Use
  Company Number: US-HORIZON-ACT-0216-2016

PATIENT
  Age: 7 Year
  Sex: Male

DRUGS (3)
  1. TRIMETHOPRIM. [Concomitant]
     Active Substance: TRIMETHOPRIM
     Dosage: 1 TSP TID
  2. ACTIMMUNE [Suspect]
     Active Substance: INTERFERON GAMMA-1B
     Indication: CHRONIC GRANULOMATOUS DISEASE
     Dosage: 40 ?G TIW
     Dates: start: 20121108
  3. SPORANOX [Concomitant]
     Active Substance: ITRACONAZOLE

REACTIONS (3)
  - Staphylococcal infection [Recovered/Resolved]
  - Seizure [Recovered/Resolved]
  - Hypoalbuminaemia [Unknown]

NARRATIVE: CASE EVENT DATE: 2014
